FAERS Safety Report 11705716 (Version 1)
Quarter: 2015Q4

REPORT INFORMATION
  Report Type: Spontaneous
  Country: JP (occurrence: JP)
  Receive Date: 20151106
  Receipt Date: 20151106
  Transmission Date: 20160304
  Serious: Yes (Hospitalization, Other)
  Sender: FDA-Public Use
  Company Number: JP-GE HEALTHCARE MEDICAL DIAGNOSTICS-MSTR-PR-1510S-0009

PATIENT
  Age: 42 Year
  Sex: Male

DRUGS (5)
  1. NAPROXEN. [Concomitant]
     Active Substance: NAPROXEN
  2. METASTRON [Suspect]
     Active Substance: STRONTIUM CHLORIDE SR-89
     Indication: THERAPEUTIC PROCEDURE
  3. OXYCODONE [Concomitant]
     Active Substance: OXYCODONE
  4. ZOLEDRONIC ACID [Concomitant]
     Active Substance: ZOLEDRONIC ACID
  5. METASTRON [Suspect]
     Active Substance: STRONTIUM CHLORIDE SR-89
     Indication: METASTATIC PAIN
     Dosage: DOSE NOT REPORTED
     Route: 065
     Dates: start: 20130604, end: 20130604

REACTIONS (1)
  - Neutropenia [Recovered/Resolved]

NARRATIVE: CASE EVENT DATE: 20130618
